FAERS Safety Report 14572748 (Version 1)
Quarter: 2018Q1

REPORT INFORMATION
  Report Type: Spontaneous
  Country: US (occurrence: US)
  Receive Date: 20180226
  Receipt Date: 20180226
  Transmission Date: 20180509
  Serious: Yes (Hospitalization, Other)
  Sender: FDA-Public Use
  Company Number: US-US WORLDMEDS, LLC-USW201802-000232

PATIENT
  Age: 74 Year
  Sex: Female

DRUGS (5)
  1. AMBIEN [Concomitant]
     Active Substance: ZOLPIDEM TARTRATE
     Indication: SLEEP DISORDER
  2. HUMIRA [Suspect]
     Active Substance: ADALIMUMAB
     Indication: RHEUMATOID ARTHRITIS
     Route: 058
     Dates: end: 201801
  3. CORGARD [Suspect]
     Active Substance: NADOLOL
     Indication: BLOOD PRESSURE MEASUREMENT
     Dates: end: 201801
  4. PREDNISONE. [Concomitant]
     Active Substance: PREDNISONE
  5. CYMBALTA [Concomitant]
     Active Substance: DULOXETINE HYDROCHLORIDE

REACTIONS (7)
  - Limb injury [Recovering/Resolving]
  - Speech disorder [Recovered/Resolved]
  - Wound complication [Recovering/Resolving]
  - Seizure [Recovered/Resolved]
  - Blood pressure increased [Recovered/Resolved]
  - Immunodeficiency [Not Recovered/Not Resolved]
  - Dyspnoea [Recovered/Resolved]

NARRATIVE: CASE EVENT DATE: 201712
